FAERS Safety Report 20213376 (Version 1)
Quarter: 2021Q4

REPORT INFORMATION
  Report Type: Spontaneous
  Country: US (occurrence: US)
  Receive Date: 20211221
  Receipt Date: 20211221
  Transmission Date: 20220303
  Serious: Yes (Hospitalization, Other)
  Sender: FDA-Public Use
  Company Number: US-JNJFOC-20211224932

PATIENT
  Age: 79 Year
  Sex: Male

DRUGS (2)
  1. IMBRUVICA [Suspect]
     Active Substance: IBRUTINIB
     Indication: Mantle cell lymphoma
     Route: 048
  2. ALLOPURINOL [Suspect]
     Active Substance: ALLOPURINOL
     Indication: Product used for unknown indication
     Route: 065

REACTIONS (5)
  - Hyperphosphataemia [Recovering/Resolving]
  - Acute kidney injury [Recovering/Resolving]
  - Hyperbilirubinaemia [Recovering/Resolving]
  - Tumour lysis syndrome [Unknown]
  - Hepatomegaly [Recovering/Resolving]
